FAERS Safety Report 15396192 (Version 1)
Quarter: 2018Q3

REPORT INFORMATION
  Report Type: Other
  Country: US (occurrence: US)
  Receive Date: 20180918
  Receipt Date: 20180918
  Transmission Date: 20181010
  Serious: No
  Sender: FDA-Public Use
  Company Number: US-LEADIANT BIOSCIENCES INC-2017STPI000939

PATIENT
  Sex: Female

DRUGS (6)
  1. GLEOSTINE [Concomitant]
     Active Substance: LOMUSTINE
  2. MATULANE [Suspect]
     Active Substance: PROCARBAZINE HYDROCHLORIDE
     Indication: NEOPLASM MALIGNANT
     Dosage: 50 MG, (2 CAPSULES Q 14 DAUS, STARTING ON DAY 5?21 Q 6 WEEKS CYCLE)
     Route: 048
     Dates: start: 20170706
  3. HYDROCHLOROTHIAZIDE. [Concomitant]
     Active Substance: HYDROCHLOROTHIAZIDE
  4. DILTIAZEM. [Concomitant]
     Active Substance: DILTIAZEM
  5. ZOFRAN [Concomitant]
     Active Substance: ONDANSETRON HYDROCHLORIDE
  6. KEPPRA [Concomitant]
     Active Substance: LEVETIRACETAM

REACTIONS (3)
  - Weight decreased [Unknown]
  - Asthenia [Unknown]
  - Nausea [Unknown]
